FAERS Safety Report 7483077-9 (Version None)
Quarter: 2011Q2

REPORT INFORMATION
  Report Type: 
  Country: None (occurrence: None)
  Receive Date: 20110516
  Receipt Date: 20110510
  Transmission Date: 20111010
  Serious: Yes (Other)
  Sender: FDA-Public Use
  Company Number: GB-BAXTER-2011BH016036

PATIENT
  Age: 45 Year
  Sex: Female
  Weight: 98 kg

DRUGS (4)
  1. EPIRUBICIN HYDROCHLORIDE [Suspect]
     Indication: BREAST CANCER
     Route: 051
     Dates: start: 20100825, end: 20101208
  2. FLUOROURACIL [Suspect]
     Indication: BREAST CANCER
     Route: 065
     Dates: start: 20100825, end: 20101208
  3. CYCLOPHOSPHAMIDE [Suspect]
     Indication: BREAST CANCER
     Route: 065
     Dates: start: 20100825, end: 20101208
  4. TRASTUZUMAB [Suspect]
     Indication: BREAST CANCER
     Route: 051
     Dates: start: 20110206, end: 20110331

REACTIONS (2)
  - LEFT VENTRICULAR DYSFUNCTION [None]
  - CARDIAC FAILURE [None]
